FAERS Safety Report 7503689-3 (Version None)
Quarter: 2011Q2

REPORT INFORMATION
  Report Type: 
  Country: None (occurrence: None)
  Receive Date: 20110524
  Receipt Date: 20110524
  Transmission Date: 20111010
  Serious: Yes (Hospitalization)
  Sender: FDA-Public Use
  Company Number: None

PATIENT
  Sex: Male
  Weight: 83.0083 kg

DRUGS (2)
  1. ASPIRIN [Suspect]
     Dosage: 81 MG DAILY
  2. PLAVIX [Suspect]
     Dosage: 75 MG DAILY
     Dates: start: 20081111, end: 20110520

REACTIONS (1)
  - CARDIAC FAILURE ACUTE [None]
